FAERS Safety Report 8793275 (Version 2)
Quarter: 2012Q4

REPORT INFORMATION
  Report Type: 
  Country: CA (occurrence: CA)
  Receive Date: 20120918
  Receipt Date: 20121001
  Transmission Date: 20130627
  Serious: Yes (Hospitalization, Other)
  Sender: FDA-Public Use
  Company Number: CA-PFIZER INC-2012186905

PATIENT
  Age: 56 Year
  Sex: Female

DRUGS (2)
  1. DILANTIN [Suspect]
     Indication: PETIT MAL EPILEPSY
     Dosage: 100 mg, 2x/day
     Route: 048
     Dates: start: 2002
  2. ATORVASTATIN [Concomitant]
     Indication: BLOOD CHOLESTEROL ABNORMAL
     Dosage: 10 mg, 1x/day
     Dates: start: 20111215

REACTIONS (3)
  - Grand mal convulsion [Recovered/Resolved]
  - Anticonvulsant drug level decreased [Unknown]
  - Lethargy [Unknown]
